FAERS Safety Report 22284864 (Version 1)
Quarter: 2023Q2

REPORT INFORMATION
  Report Type: Spontaneous
  Country: JP (occurrence: JP)
  Receive Date: 20230504
  Receipt Date: 20230504
  Transmission Date: 20230721
  Serious: Yes (Hospitalization)
  Sender: FDA-Public Use
  Company Number: JP-KYOWAKIRIN-2022AKK014848

PATIENT
  Age: 65 Year
  Sex: Female

DRUGS (4)
  1. PEGFILGRASTIM [Suspect]
     Active Substance: PEGFILGRASTIM
     Indication: Colony stimulating factor therapy
     Dosage: UNK
     Route: 058
  2. DOXIL [Concomitant]
     Active Substance: DOXORUBICIN HYDROCHLORIDE
     Indication: Ovarian cancer stage III
     Dosage: UNK
     Route: 065
  3. CARBOPLATIN [Concomitant]
     Active Substance: CARBOPLATIN
     Indication: Ovarian cancer stage III
     Dosage: UNK
     Route: 065
  4. DEXRAZOXANE [Concomitant]
     Active Substance: DEXRAZOXANE
     Indication: Chemotherapy extravasation management
     Dosage: UNK
     Route: 065

REACTIONS (2)
  - Drug interaction [Recovered/Resolved]
  - Off label use [Unknown]
